FAERS Safety Report 9531485 (Version 3)
Quarter: 2013Q4

REPORT INFORMATION
  Report Type: Report from Study
  Country: US (occurrence: US)
  Receive Date: 20130918
  Receipt Date: 20131007
  Transmission Date: 20140711
  Serious: Yes (Hospitalization, Other)
  Sender: FDA-Public Use
  Company Number: US-ABBVIE-13P-163-1139828-00

PATIENT
  Age: 65 Year
  Sex: Female

DRUGS (14)
  1. HUMIRA [Suspect]
     Indication: CROHN^S DISEASE
     Dosage: 160MG ONE TIME
     Dates: start: 20130726, end: 20130726
  2. HUMIRA [Suspect]
     Dosage: ONE TIME DOSE
     Dates: start: 20130809, end: 20130809
  3. HUMIRA [Suspect]
     Dates: end: 20130823
  4. TPN [Concomitant]
     Indication: PRODUCT USED FOR UNKNOWN INDICATION
     Dates: start: 201305
  5. BENADRYL [Concomitant]
  6. KLONOPIN [Concomitant]
     Indication: ANXIETY
  7. CYMBALTA [Concomitant]
     Indication: DEPRESSION
  8. MORPHINE [Concomitant]
     Indication: PAIN
  9. PRILOSEC [Concomitant]
     Indication: GASTROOESOPHAGEAL REFLUX DISEASE
  10. PHENERGAN [Concomitant]
     Indication: NAUSEA
     Dosage: EVERY 6 HOURS
  11. WARFARIN [Concomitant]
     Indication: THROMBOSIS
  12. CAPTAPURINE [Concomitant]
     Indication: CROHN^S DISEASE
  13. PREDNISONE [Concomitant]
     Indication: CROHN^S DISEASE
     Dosage: BID
  14. TYLENOL [Concomitant]
     Indication: PAIN

REACTIONS (14)
  - Device occlusion [Recovered/Resolved with Sequelae]
  - Thrombosis [Not Recovered/Not Resolved]
  - Local swelling [Recovered/Resolved]
  - Localised oedema [Recovered/Resolved]
  - Pyrexia [Not Recovered/Not Resolved]
  - Infection [Not Recovered/Not Resolved]
  - Fistula [Not Recovered/Not Resolved]
  - Urinary tract infection [Not Recovered/Not Resolved]
  - Pulmonary embolism [Not Recovered/Not Resolved]
  - Colitis [Not Recovered/Not Resolved]
  - Malaise [Unknown]
  - Injection site pruritus [Recovered/Resolved]
  - Haemorrhage [Recovered/Resolved]
  - Injection site bruising [Not Recovered/Not Resolved]
